FAERS Safety Report 10565038 (Version 2)
Quarter: 2014Q4

REPORT INFORMATION
  Report Type: Spontaneous
  Country: US (occurrence: US)
  Receive Date: 20141105
  Receipt Date: 20141105
  Transmission Date: 20150529
  Serious: Yes (Other)
  Sender: FDA-Public Use
  Company Number: US-AUROBINDO-AUR-APL-2014-07858

PATIENT
  Sex: Female
  Weight: 86.97 kg

DRUGS (14)
  1. METHOCARBAMOL. [Concomitant]
     Active Substance: METHOCARBAMOL
     Indication: PRODUCT USED FOR UNKNOWN INDICATION
     Dosage: 500 MG, DAILY
     Route: 048
  2. IPRATROPIUM BROMIDE W/SALBUTAMOL SULFATE [Concomitant]
     Indication: PRODUCT USED FOR UNKNOWN INDICATION
     Dosage: 1 VIAL VIA NEBULIZER INHALATION FOUR TIMES DAILY
     Route: 065
  3. NORVASC [Suspect]
     Active Substance: AMLODIPINE BESYLATE
     Indication: HYPERTENSION
     Dosage: 5 MG, DAILY
     Route: 048
  4. ADVAIR DISKUS [Concomitant]
     Active Substance: FLUTICASONE PROPIONATE\SALMETEROL XINAFOATE
     Indication: PRODUCT USED FOR UNKNOWN INDICATION
     Dosage: INHALATION TWO TIMES DAILY
     Route: 065
  5. PROAIR HFA [Concomitant]
     Active Substance: ALBUTEROL SULFATE
     Indication: PRODUCT USED FOR UNKNOWN INDICATION
     Dosage: 2 PUFFS INHALATION EVERY FOUR HOURS, AS NEEDED
     Route: 065
  6. REVATIO [Concomitant]
     Active Substance: SILDENAFIL CITRATE
     Indication: PRODUCT USED FOR UNKNOWN INDICATION
     Dosage: 20 MG, 3 TIMES A DAY
     Route: 048
     Dates: start: 20140307
  7. ATENOLOL 100 MG [Suspect]
     Active Substance: ATENOLOL
     Indication: HYPERTENSION
     Dosage: 100 MG, DAILY
     Route: 048
  8. ECOTRIN LOW STRENGTH [Concomitant]
     Indication: PRODUCT USED FOR UNKNOWN INDICATION
     Dosage: 81 MG, DAILY
     Route: 048
  9. NASONEX [Concomitant]
     Active Substance: MOMETASONE FUROATE
     Indication: PRODUCT USED FOR UNKNOWN INDICATION
     Dosage: 1 SPRAY EACH NOSTRIL NASAL DAILY
     Route: 065
  10. IRBESARTAN 300 MG [Suspect]
     Active Substance: IRBESARTAN
     Indication: HYPERTENSION
     Dosage: 300 MG, DAILY
     Route: 048
  11. LASIX [Suspect]
     Active Substance: FUROSEMIDE
     Indication: HYPERTENSION
     Dosage: 1 DF AND HALF DAILY
     Route: 065
  12. CELEBREX [Concomitant]
     Active Substance: CELECOXIB
     Indication: PRODUCT USED FOR UNKNOWN INDICATION
     Dosage: 200 MG, DAILY
     Route: 048
  13. LISINOPRIL. [Suspect]
     Active Substance: LISINOPRIL
     Indication: HYPERTENSION
     Dosage: 40 MG, DAILY
     Route: 048
  14. HYDRALAZINE [Suspect]
     Active Substance: HYDRALAZINE HYDROCHLORIDE
     Indication: HYPERTENSION
     Dosage: 100 MG, DAILY
     Route: 048

REACTIONS (6)
  - Blood pressure inadequately controlled [Unknown]
  - Hypoxia [None]
  - Dyspnoea exertional [Unknown]
  - Drug administration error [Unknown]
  - Dyspnoea [Unknown]
  - Exercise tolerance decreased [Unknown]
